FAERS Safety Report 6917752-9 (Version None)
Quarter: 2010Q3

REPORT INFORMATION
  Report Type: 
  Country: None (occurrence: None)
  Receive Date: 20100810
  Receipt Date: 20100729
  Transmission Date: 20110219
  Serious: Yes (Other)
  Sender: FDA-Public Use
  Company Number: JP-PFIZER INC-2010088708

PATIENT
  Age: 88 Year
  Sex: Male

DRUGS (11)
  1. LYRICA [Suspect]
     Indication: POST HERPETIC NEURALGIA
     Dosage: 150 MG, DAY
     Route: 048
     Dates: start: 20100622, end: 20100708
  2. MAINTATE [Concomitant]
     Dosage: 2.5MG A DAY
     Route: 048
  3. OLMESARTAN MEDOXOMIL [Concomitant]
     Dosage: 20MG A DAY
     Route: 048
  4. TRICHLORMETHIAZIDE [Concomitant]
     Dosage: 2MG A DAY
     Route: 048
  5. NORVASC [Concomitant]
     Dosage: 5MG A DAY
     Route: 048
  6. ETIZOLAM [Concomitant]
     Dosage: 0.5MG A DAY
     Route: 048
  7. LOXONIN [Concomitant]
     Dosage: 60MG A DAY
     Route: 048
  8. TIZANIDINE HCL [Concomitant]
     Dosage: 1MG A DAY
     Route: 048
  9. MUCOSTA [Concomitant]
     Dosage: 100MG A DAY
     Route: 048
  10. ADRENAL CORTICAL EX/MUCOPOLYSACCHARIDE PS A ESTER/SALICYLIC ACID [Concomitant]
  11. WARFARIN [Concomitant]
     Dosage: 1MG A DAY
     Route: 048

REACTIONS (1)
  - ATRIAL FIBRILLATION [None]
